FAERS Safety Report 15782534 (Version 1)
Quarter: 2019Q1

REPORT INFORMATION
  Report Type: Spontaneous
  Country: EG (occurrence: EG)
  Receive Date: 20190102
  Receipt Date: 20190102
  Transmission Date: 20190417
  Serious: Yes (Hospitalization, Other)
  Sender: FDA-Public Use
  Company Number: EG-NOVOPROD-639969

PATIENT
  Age: 47 Year
  Sex: Female
  Weight: 82 kg

DRUGS (5)
  1. ERASTAPEX [Concomitant]
     Indication: HYPERTENSION
     Dosage: 1 TAB, QD(MORNING)
     Route: 048
  2. DEPOVIT B12 [Concomitant]
     Indication: CHONDROPATHY
     Dosage: UNK
  3. CONCOR [Concomitant]
     Active Substance: BISOPROLOL FUMARATE
     Indication: HYPERTENSION
     Dosage: 1 TAB, QD (NIGHT)
     Route: 048
  4. NEUROTON                           /00434802/ [Concomitant]
     Indication: CHONDROPATHY
     Dosage: UNK
  5. MIXTARD HUMAN 70/30 [Suspect]
     Active Substance: INSULIN HUMAN
     Indication: DIABETES MELLITUS
     Dosage: 105 U, QD (70U/MORNING AND 35 U/NIGHT)
     Route: 058

REACTIONS (3)
  - Postoperative wound infection [Unknown]
  - Hyperglycaemia [Not Recovered/Not Resolved]
  - Uterine adhesions [Unknown]

NARRATIVE: CASE EVENT DATE: 201805
